FAERS Safety Report 13813809 (Version 1)
Quarter: 2017Q3

REPORT INFORMATION
  Report Type: Spontaneous
  Country: US (occurrence: US)
  Receive Date: 20170728
  Receipt Date: 20170728
  Transmission Date: 20171127
  Serious: Yes (Hospitalization)
  Sender: FDA-Public Use
  Company Number: None

PATIENT
  Age: 36 Year
  Sex: Female

DRUGS (14)
  1. OMEPRAZOLE. [Concomitant]
     Active Substance: OMEPRAZOLE
  2. MONTELUKAST [Concomitant]
     Active Substance: MONTELUKAST SODIUM
  3. FUROSEMIDE. [Concomitant]
     Active Substance: FUROSEMIDE
  4. LACTULOSE. [Concomitant]
     Active Substance: LACTULOSE
  5. PROTONIX [Concomitant]
     Active Substance: PANTOPRAZOLE SODIUM
  6. ZYRTEC ALLGY [Concomitant]
  7. URSODIOL. [Concomitant]
     Active Substance: URSODIOL
  8. PROPRANOLOL [Concomitant]
     Active Substance: PROPRANOLOL HYDROCHLORIDE
  9. OCALIVA [Suspect]
     Active Substance: OBETICHOLIC ACID
     Indication: BILIARY CIRRHOSIS PRIMARY
     Route: 048
     Dates: start: 201704
  10. SPIRONOLACT [Concomitant]
  11. STOOL SOFTNR [Concomitant]
  12. METAMUCIL [Concomitant]
     Active Substance: PLANTAGO SEED
  13. GENERLAC [Concomitant]
     Active Substance: LACTULOSE
  14. PANTOPRAZOLE [Concomitant]
     Active Substance: PANTOPRAZOLE

REACTIONS (4)
  - Haematochezia [None]
  - Blood urine present [None]
  - Peripheral swelling [None]
  - Abdominal distension [None]

NARRATIVE: CASE EVENT DATE: 20170713
